FAERS Safety Report 17404507 (Version 3)
Quarter: 2020Q1

REPORT INFORMATION
  Report Type: Spontaneous
  Country: US (occurrence: US)
  Receive Date: 20200211
  Receipt Date: 20200331
  Transmission Date: 20200409
  Serious: Yes (Hospitalization, Other)
  Sender: FDA-Public Use
  Company Number: US-PFIZER INC-2020054971

PATIENT
  Age: 90 Year
  Sex: Female
  Weight: 54.38 kg

DRUGS (3)
  1. DEPO-MEDROL [Suspect]
     Active Substance: METHYLPREDNISOLONE ACETATE
     Dosage: 80 MG, UNK (IN RIGHT KNEE, PERCUTANEOUS)
     Route: 014
     Dates: start: 20191226
  2. DEPO-MEDROL [Suspect]
     Active Substance: METHYLPREDNISOLONE ACETATE
     Dosage: 80 MG, UNK (IN LEFT KNEE)
     Route: 014
     Dates: start: 20191230
  3. COUMADIN [Concomitant]
     Active Substance: WARFARIN SODIUM
     Dosage: UNK
     Dates: end: 20191223

REACTIONS (4)
  - Product complaint [Unknown]
  - Pseudomonas infection [Unknown]
  - Suspected transmission of an infectious agent via product [Unknown]
  - Arthritis bacterial [Unknown]

NARRATIVE: CASE EVENT DATE: 2020
